FAERS Safety Report 7364220-9 (Version None)
Quarter: 2011Q1

REPORT INFORMATION
  Report Type: 
  Country: None (occurrence: None)
  Receive Date: 20110321
  Receipt Date: 20110310
  Transmission Date: 20110831
  Serious: Yes (Hospitalization, Disabling)
  Sender: FDA-Public Use
  Company Number: A0750974A

PATIENT
  Age: 53 Year
  Sex: Male

DRUGS (2)
  1. AVANDAMET [Suspect]
     Indication: DIABETES MELLITUS
     Dosage: 4MG TWICE PER DAY
     Route: 048
     Dates: start: 20060916, end: 20070601
  2. AVANDIA [Suspect]
     Dosage: 4MG TWICE PER DAY
     Route: 048
     Dates: start: 20040714, end: 20070520

REACTIONS (13)
  - MYOCARDIAL ISCHAEMIA [None]
  - INTRACARDIAC THROMBUS [None]
  - ATRIAL FIBRILLATION [None]
  - CARDIAC FAILURE CONGESTIVE [None]
  - MYOCARDIAL INFARCTION [None]
  - ASCITES [None]
  - ATRIOVENTRICULAR BLOCK SECOND DEGREE [None]
  - PORTAL HYPERTENSION [None]
  - LIBIDO DECREASED [None]
  - CONGESTIVE CARDIOMYOPATHY [None]
  - CARDIAC CIRRHOSIS [None]
  - PULMONARY OEDEMA [None]
  - RENAL DISORDER [None]
